FAERS Safety Report 19196598 (Version 2)
Quarter: 2021Q2

REPORT INFORMATION
  Report Type: Report from Study
  Country: US (occurrence: US)
  Receive Date: 20210429
  Receipt Date: 20210601
  Transmission Date: 20210717
  Serious: Yes (Hospitalization, Other)
  Sender: FDA-Public Use
  Company Number: US-TAKEDA-US202021326

PATIENT
  Sex: Female

DRUGS (8)
  1. TEDUGLUTIDE [Suspect]
     Active Substance: TEDUGLUTIDE
     Indication: SHORT-BOWEL SYNDROME
     Dosage: 1.77 MILLIGRAM, QD
     Route: 058
     Dates: start: 20180128
  2. TEDUGLUTIDE [Suspect]
     Active Substance: TEDUGLUTIDE
     Indication: SHORT-BOWEL SYNDROME
     Dosage: 1.77 MILLIGRAM, QD
     Route: 058
     Dates: start: 20180128
  3. TEDUGLUTIDE [Suspect]
     Active Substance: TEDUGLUTIDE
     Dosage: 1.77 MILLIGRAM, QD
     Route: 058
     Dates: start: 20180130
  4. TEDUGLUTIDE [Suspect]
     Active Substance: TEDUGLUTIDE
     Indication: SHORT-BOWEL SYNDROME
     Dosage: 1.77 MILLIGRAM, QD
     Route: 058
     Dates: start: 20180128
  5. TEDUGLUTIDE [Suspect]
     Active Substance: TEDUGLUTIDE
     Dosage: 1.77 MILLIGRAM, QD
     Route: 058
     Dates: start: 20180130
  6. TEDUGLUTIDE [Suspect]
     Active Substance: TEDUGLUTIDE
     Dosage: 1.77 MILLIGRAM, QD
     Route: 058
     Dates: start: 20180130
  7. TEDUGLUTIDE [Suspect]
     Active Substance: TEDUGLUTIDE
     Indication: SHORT-BOWEL SYNDROME
     Dosage: 1.77 MILLIGRAM, QD
     Route: 058
     Dates: start: 20180128
  8. TEDUGLUTIDE [Suspect]
     Active Substance: TEDUGLUTIDE
     Dosage: 1.77 MILLIGRAM, QD
     Route: 058
     Dates: start: 20180130

REACTIONS (3)
  - Weight increased [Unknown]
  - Leg amputation [Unknown]
  - Adverse event [Unknown]
